FAERS Safety Report 7435517-9 (Version None)
Quarter: 2011Q2

REPORT INFORMATION
  Report Type: 
  Country: None (occurrence: None)
  Receive Date: 20110418
  Receipt Date: 20110404
  Transmission Date: 20111010
  Serious: Yes (Hospitalization, Disabling, Other)
  Sender: FDA-Public Use
  Company Number: 2011P1005614

PATIENT
  Age: 84 Year
  Sex: Female
  Weight: 45.3597 kg

DRUGS (10)
  1. ^METENIX^ [Concomitant]
  2. VITAMIN B [Concomitant]
  3. VITAMIN C [Concomitant]
  4. VITAMIN D [Concomitant]
  5. WARFARIN SODIUM [Suspect]
     Indication: THROMBOSIS
     Dosage: 2.5 MG; TUESDAYS; PO
     Route: 048
     Dates: start: 20080601
  6. WARFARIN SODIUM [Suspect]
     Indication: THROMBOSIS
     Dosage: 5 MG; 6 DAYS/WEEK; PO
     Route: 048
     Dates: start: 20080601
  7. GABAPENTIN [Concomitant]
  8. OXYCODONE [Concomitant]
  9. XANAX [Concomitant]
  10. FOLIC ACID [Concomitant]

REACTIONS (22)
  - POST PROCEDURAL INFECTION [None]
  - CHEST DISCOMFORT [None]
  - BEDRIDDEN [None]
  - DIZZINESS [None]
  - MUSCLE TIGHTNESS [None]
  - PARAESTHESIA [None]
  - HYPOTENSION [None]
  - LIP SWELLING [None]
  - FEELING COLD [None]
  - ABASIA [None]
  - ANXIETY [None]
  - INTERNATIONAL NORMALISED RATIO DECREASED [None]
  - PARALYSIS [None]
  - OEDEMA PERIPHERAL [None]
  - GENERALISED OEDEMA [None]
  - BALANCE DISORDER [None]
  - MALAISE [None]
  - CHILLS [None]
  - FALL [None]
  - WEIGHT DECREASED [None]
  - OVARIAN CANCER RECURRENT [None]
  - KNEE OPERATION [None]
